FAERS Safety Report 13306528 (Version 1)
Quarter: 2017Q1

REPORT INFORMATION
  Report Type: Spontaneous
  Country: FR (occurrence: FR)
  Receive Date: 20170308
  Receipt Date: 20170308
  Transmission Date: 20170428
  Serious: Yes (Hospitalization, Other)
  Sender: FDA-Public Use
  Company Number: FR-CELGENEUS-FRA-2017027431

PATIENT
  Age: 29 Year
  Sex: Male

DRUGS (3)
  1. AZACITIDINE. [Suspect]
     Active Substance: AZACITIDINE
     Indication: ACUTE MYELOID LEUKAEMIA
     Dosage: 75 MILLIGRAM/SQ. METER
     Route: 041
  2. AZACITIDINE. [Suspect]
     Active Substance: AZACITIDINE
     Route: 041
  3. SORAFENIB [Concomitant]
     Active Substance: SORAFENIB
     Indication: ACUTE MYELOID LEUKAEMIA
     Dosage: 800 MILLIGRAM
     Route: 065

REACTIONS (3)
  - Graft versus host disease [Unknown]
  - Hepatotoxicity [Unknown]
  - Pneumonia viral [Unknown]
